FAERS Safety Report 4754699-0 (Version None)
Quarter: 2005Q3

REPORT INFORMATION
  Report Type: 
  Country: None (occurrence: None)
  Receive Date: 20050826
  Receipt Date: 20020618
  Transmission Date: 20060218
  Serious: Yes (Hospitalization, Other)
  Sender: FDA-Public Use
  Company Number: USA-2002-0001440

PATIENT
  Age: 28 Year
  Sex: Female
  Weight: 68 kg

DRUGS (33)
  1. OXYCONTIN [Suspect]
     Indication: PAIN
     Dosage: 20 MG, BID, ORAL
     Route: 048
     Dates: start: 20000820, end: 20020222
  2. OXYCONTIN [Suspect]
     Indication: PAIN
     Dosage: 80 MG, TID, ORAL
     Route: 048
     Dates: start: 20010820, end: 20020222
  3. OXYCONTIN [Suspect]
     Indication: PAIN
     Dosage: 80 MG, TID, ORAL
     Route: 048
     Dates: start: 20010914, end: 20020222
  4. HYDROMORPHONE HYDROCHLORIDE IMMEDIATE-RELEASE (SIMILAR TO IND 38,424) [Suspect]
     Dosage: ORAL
     Route: 048
  5. SOMA [Suspect]
     Dosage: 350 MG, Q6H, ORAL
     Route: 048
  6. NORCO [Suspect]
     Dosage: 1 TABLET, BID, ORAL
     Route: 048
  7. VICODIN [Suspect]
     Dosage: ORAL
     Route: 048
  8. ALCOHOL (ETHANOL) [Suspect]
     Dosage: ORAL
     Route: 048
  9. XANAX [Suspect]
     Indication: ANXIETY
     Dosage: 1 MG, PRN, ORAL
     Route: 048
  10. LORTAB [Suspect]
     Dosage: 7.5 MG, PRN, ORAL
     Route: 048
     Dates: start: 19960101, end: 20020101
  11. WELLBUTRIN SR [Concomitant]
  12. ATENOLOL [Concomitant]
  13. FENTANYL [Concomitant]
  14. ADIPEX-P [Concomitant]
  15. ULTRAM [Concomitant]
  16. CELEBREX [Concomitant]
  17. ZANAFLEX [Concomitant]
  18. VIOXX [Concomitant]
  19. METOCLOPRAMIDE [Concomitant]
  20. PROMETHAZINE [Concomitant]
  21. IMIPRAMINE [Concomitant]
  22. DOXYCYCLINE [Concomitant]
  23. DEPO-PROVERA [Concomitant]
  24. PROPOXYPHENE HCL [Concomitant]
  25. CLONIDINE [Concomitant]
  26. PROZAC [Concomitant]
  27. AMBIEN [Concomitant]
  28. ESGIC [Concomitant]
  29. EFFEXOR [Concomitant]
  30. TOFRANIL [Concomitant]
  31. BELLAMINE [Concomitant]
  32. PHRENILIN [Concomitant]
  33. OVCON-35 [Concomitant]

REACTIONS (23)
  - ABDOMINAL PAIN UPPER [None]
  - DRUG ABUSER [None]
  - DRUG DEPENDENCE [None]
  - DRUG INEFFECTIVE [None]
  - DRUG WITHDRAWAL SYNDROME [None]
  - EMOTIONAL DISTRESS [None]
  - FALL [None]
  - FATIGUE [None]
  - FEELING HOT AND COLD [None]
  - HEADACHE [None]
  - HYPERHIDROSIS [None]
  - INSOMNIA [None]
  - MAJOR DEPRESSION [None]
  - MALAISE [None]
  - MUSCLE SPASMS [None]
  - NAUSEA [None]
  - PAIN [None]
  - PALPITATIONS [None]
  - PARONYCHIA [None]
  - PELVIC INFLAMMATORY DISEASE [None]
  - RASH [None]
  - TREMOR [None]
  - VISION BLURRED [None]
